FAERS Safety Report 14424949 (Version 1)
Quarter: 2018Q1

REPORT INFORMATION
  Report Type: Spontaneous
  Country: US (occurrence: US)
  Receive Date: 20180123
  Receipt Date: 20180123
  Transmission Date: 20180509
  Serious: Yes (Other)
  Sender: FDA-Public Use
  Company Number: US-MYLANLABS-2018M1005146

PATIENT
  Age: 12 Year
  Sex: Female

DRUGS (7)
  1. MINOCYCLINE [Suspect]
     Active Substance: MINOCYCLINE\MINOCYCLINE HYDROCHLORIDE
     Indication: ANTIBIOTIC THERAPY
     Dosage: UNK
     Route: 042
  2. VANCOMYCIN [Suspect]
     Active Substance: VANCOMYCIN
     Indication: ANTIBIOTIC THERAPY
     Dosage: 2 HOUR INFUSION, INCREASED TO 3 HOURS
     Route: 050
  3. AZTREONAM. [Suspect]
     Active Substance: AZTREONAM
     Indication: ANTIBIOTIC THERAPY
     Dosage: UNK
     Route: 065
  4. DIPHENHYDRAMINE. [Concomitant]
     Active Substance: DIPHENHYDRAMINE
     Dosage: 50 MG, UNK
     Route: 065
  5. LINEZOLID. [Suspect]
     Active Substance: LINEZOLID
     Indication: ANTIBIOTIC THERAPY
     Dosage: TWO TREATMENT COURSES
     Route: 065
  6. CEFTAROLINE [Suspect]
     Active Substance: CEFTAROLINE
     Indication: ANTIBIOTIC THERAPY
     Dosage: UNK
     Route: 065
  7. DIPHENHYDRAMINE. [Concomitant]
     Active Substance: DIPHENHYDRAMINE
     Indication: PREMEDICATION
     Dosage: DOSE DOUBLED
     Route: 065

REACTIONS (3)
  - Paraesthesia [Unknown]
  - Red man syndrome [Recovering/Resolving]
  - Type IV hypersensitivity reaction [Unknown]
